FAERS Safety Report 7587918-6 (Version None)
Quarter: 2011Q3

REPORT INFORMATION
  Report Type: 
  Country: None (occurrence: None)
  Receive Date: 20110705
  Receipt Date: 20110622
  Transmission Date: 20111222
  Serious: No
  Sender: FDA-Public Use
  Company Number: US-BIOGENIDEC-2011BI023927

PATIENT
  Age: 38 Year
  Sex: Female

DRUGS (2)
  1. HYDROCODONE BITARTRATE [Concomitant]
  2. TYSABRI [Suspect]
     Indication: MULTIPLE SCLEROSIS
     Route: 042
     Dates: start: 20110502

REACTIONS (4)
  - RED BLOOD CELL COUNT DECREASED [None]
  - SPLENOMEGALY [None]
  - DYSPNOEA [None]
  - PYREXIA [None]
